FAERS Safety Report 10770508 (Version 1)
Quarter: 2015Q1

REPORT INFORMATION
  Report Type: Spontaneous
  Country: US (occurrence: None)
  Receive Date: 20150206
  Receipt Date: 20150206
  Transmission Date: 20150721
  Serious: Yes (Hospitalization)
  Sender: FDA-Public Use
  Company Number: HYP201307-000037

PATIENT
  Age: 37 Year
  Sex: Female
  Weight: 73.4 kg

DRUGS (13)
  1. ACETAMINOPHEN. [Concomitant]
     Active Substance: ACETAMINOPHEN
  2. CITRULINE [Concomitant]
  3. BUSPAR [Concomitant]
     Active Substance: BUSPIRONE HYDROCHLORIDE
  4. OMEPRAZOLE. [Concomitant]
     Active Substance: OMEPRAZOLE
  5. RITALIN [Concomitant]
     Active Substance: METHYLPHENIDATE HYDROCHLORIDE
  6. NASONEX [Concomitant]
     Active Substance: MOMETASONE FUROATE
  7. DOCUSATE SODIUM. [Concomitant]
     Active Substance: DOCUSATE SODIUM
  8. RAVICTI [Suspect]
     Active Substance: GLYCEROL PHENYLBUTYRATE
     Indication: UREA CYCLE ENZYME DEFICIENCY
     Route: 048
     Dates: start: 201304, end: 20130711
  9. ALBUTEROL SULFATE. [Concomitant]
     Active Substance: ALBUTEROL SULFATE
  10. MULTIVITAMINS WITH IRON [Concomitant]
     Active Substance: IRON\VITAMINS
  11. TOPAMAX [Concomitant]
     Active Substance: TOPIRAMATE
  12. AMANTADINE [Concomitant]
     Active Substance: AMANTADINE
  13. CALCIUM CARBONATE WITH VITAMIN D3 [Concomitant]

REACTIONS (5)
  - Hyperammonaemic crisis [None]
  - Aggression [None]
  - Amino acid level decreased [None]
  - Asthenia [None]
  - Mental status changes [None]

NARRATIVE: CASE EVENT DATE: 2013
